FAERS Safety Report 16805191 (Version 1)
Quarter: 2019Q4

REPORT INFORMATION
  Report Type: Spontaneous
  Country: GB (occurrence: GB)
  Receive Date: 20190913
  Receipt Date: 20190913
  Transmission Date: 20200122
  Serious: No
  Sender: FDA-Public Use
  Company Number: None

PATIENT
  Age: 3 Month
  Sex: Male
  Weight: 4.5 kg

DRUGS (1)
  1. RANITIDINE ORAL SOLUTION 150MG/10ML (SUGAR FREE [Suspect]
     Active Substance: RANITIDINE
     Indication: GASTROOESOPHAGEAL REFLUX DISEASE
     Dosage: ?          QUANTITY:1 ML;?
     Route: 048
     Dates: start: 20190618

REACTIONS (2)
  - Carcinogenicity [None]
  - Suspected product contamination [None]

NARRATIVE: CASE EVENT DATE: 20190630
